FAERS Safety Report 5982539-0 (Version None)
Quarter: 2008Q4

REPORT INFORMATION
  Report Type: 
  Country: None (occurrence: None)
  Receive Date: 20081208
  Receipt Date: 20081125
  Transmission Date: 20090506
  Serious: No
  Sender: FDA-Public Use
  Company Number: PHHY2008IL29994

PATIENT
  Age: 70 Year
  Sex: Female

DRUGS (4)
  1. ACLASTA [Suspect]
     Indication: OSTEOPOROSIS
     Dosage: 5-ONCE
     Route: 042
     Dates: start: 20070701
  2. VITAMIN D [Concomitant]
  3. CALCIUM [Concomitant]
     Dosage: 1200 MG/DAY
     Route: 048
  4. CALCIUM [Concomitant]
     Dosage: 2400 MG/DAY
     Route: 048

REACTIONS (1)
  - HYPOCALCAEMIA [None]
